FAERS Safety Report 6112350-1 (Version None)
Quarter: 2009Q1

REPORT INFORMATION
  Report Type: 
  Country: None (occurrence: None)
  Receive Date: 20090311
  Receipt Date: 20090311
  Transmission Date: 20090719
  Serious: Yes (Other)
  Sender: FDA-Public Use
  Company Number: None

PATIENT
  Sex: Male

DRUGS (1)
  1. PHENYTOIN SODIUM CAP [Suspect]
     Indication: CONVULSION
     Dosage: 100MG 4 DAILY ORAL
     Route: 048
     Dates: start: 20090126

REACTIONS (7)
  - ANTICONVULSANT DRUG LEVEL INCREASED [None]
  - DYSARTHRIA [None]
  - FATIGUE [None]
  - GAIT DISTURBANCE [None]
  - HEADACHE [None]
  - HICCUPS [None]
  - PRODUCT QUALITY ISSUE [None]
